FAERS Safety Report 7271901-4 (Version None)
Quarter: 2011Q1

REPORT INFORMATION
  Report Type: 
  Country: None (occurrence: None)
  Receive Date: 20110126
  Receipt Date: 20110113
  Transmission Date: 20110831
  Serious: Yes (Hospitalization)
  Sender: FDA-Public Use
  Company Number: 1000018268

PATIENT
  Age: 83 Year
  Sex: Female

DRUGS (2)
  1. ESCITALOPRAM [Suspect]
     Dosage: 10 MG (10 MG, 1 IN 1 D), ORAL
     Route: 048
     Dates: start: 20101201, end: 20110103
  2. KARDEOIC (ACETYLSALICYLATE  LYSINE) (ACETYLSALICYLATE LYSINE) [Concomitant]

REACTIONS (2)
  - PANCYTOPENIA [None]
  - PURPURA [None]
